FAERS Safety Report 7677700-3 (Version None)
Quarter: 2011Q3

REPORT INFORMATION
  Report Type: 
  Country: None (occurrence: None)
  Receive Date: 20110811
  Receipt Date: 20110802
  Transmission Date: 20111222
  Serious: Yes (Other)
  Sender: FDA-Public Use
  Company Number: PHHY2011US39728

PATIENT
  Sex: Male

DRUGS (15)
  1. BACLOFEN [Concomitant]
     Indication: MUSCLE SPASTICITY
     Dosage: 10 MG, TID
  2. NASONEX [Concomitant]
     Indication: HYPERSENSITIVITY
     Dosage: UNK
  3. PRAVASTATIN [Concomitant]
     Indication: BLOOD CHOLESTEROL
     Dosage: 10 MG, QD
  4. AMANTADINE HCL [Concomitant]
     Indication: FATIGUE
     Dosage: 100 MG, BID
  5. BUPROPION HYDROCHLORIDE [Concomitant]
     Indication: DEPRESSION
     Dosage: 150 MG, BID
  6. OXYBUTYNIN [Concomitant]
     Indication: INCONTINENCE
     Dosage: 5 MG, TID
  7. GEMFIBROZIL [Concomitant]
     Indication: BLOOD TRIGLYCERIDES
     Dosage: 600 MG, BID
  8. CELEXA [Concomitant]
     Dosage: 20 MG, UNK
  9. FEXOFENADINE [Concomitant]
     Indication: HYPERSENSITIVITY
     Dosage: 180 MG, ONE PER DAY
  10. TESTIM [Concomitant]
     Dosage: 1 %, QD
  11. FOLIC ACID [Concomitant]
     Dosage: 1200 UG, UNK
  12. CALCIUM W/COLECALCIFEROL [Concomitant]
     Dosage: 1200MG/1000IU
  13. AMITRIPTYLINE HCL [Concomitant]
     Indication: DEPRESSION
     Dosage: 50 MG, ONE PER DAY (AT NIGHT)
  14. CYMBALTA [Concomitant]
     Indication: DEPRESSION
     Dosage: 90 MG, QD
  15. GILENYA [Suspect]
     Indication: MULTIPLE SCLEROSIS
     Dosage: 0.5 MG, DAILY
     Route: 048
     Dates: start: 20110311

REACTIONS (6)
  - TREMOR [None]
  - FATIGUE [None]
  - DEPRESSION [None]
  - QUADRIPARESIS [None]
  - IRRITABILITY [None]
  - BLOOD PRESSURE INCREASED [None]
